FAERS Safety Report 13659603 (Version 1)
Quarter: 2017Q2

REPORT INFORMATION
  Report Type: Spontaneous
  Country: US (occurrence: US)
  Receive Date: 20170616
  Receipt Date: 20170616
  Transmission Date: 20170830
  Serious: Yes (Hospitalization)
  Sender: FDA-Public Use
  Company Number: None

PATIENT
  Age: 62 Year
  Sex: Male
  Weight: 104.4 kg

DRUGS (5)
  1. FUROSEMIDE. [Concomitant]
     Active Substance: FUROSEMIDE
  2. WARFARIN [Suspect]
     Active Substance: WARFARIN
     Indication: AORTIC VALVE REPLACEMENT
     Dosage: CHRONIC 5MG DAILY PO
     Route: 048
  3. AMILORIDE [Concomitant]
     Active Substance: AMILORIDE
  4. ASPIRIN. [Concomitant]
     Active Substance: ASPIRIN
  5. ZOCOR [Concomitant]
     Active Substance: SIMVASTATIN

REACTIONS (2)
  - Anticoagulation drug level above therapeutic [None]
  - Microcytic anaemia [None]

NARRATIVE: CASE EVENT DATE: 20170207
